FAERS Safety Report 5602548-0 (Version None)
Quarter: 2008Q1

REPORT INFORMATION
  Report Type: 
  Country: None (occurrence: None)
  Receive Date: 20080125
  Receipt Date: 20080123
  Transmission Date: 20080703
  Serious: Yes (Hospitalization)
  Sender: FDA-Public Use
  Company Number: D0055888A

PATIENT
  Age: 37 Year
  Sex: Male
  Weight: 70 kg

DRUGS (2)
  1. LAMICTAL [Suspect]
     Route: 065
  2. DIAZEPAM [Suspect]
     Route: 065

REACTIONS (7)
  - DYSARTHRIA [None]
  - ILL-DEFINED DISORDER [None]
  - INTENTIONAL OVERDOSE [None]
  - NYSTAGMUS [None]
  - SOMNOLENCE [None]
  - SUICIDE ATTEMPT [None]
  - TREMOR [None]
